FAERS Safety Report 21424037 (Version 1)
Quarter: 2022Q4

REPORT INFORMATION
  Report Type: Spontaneous
  Country: US (occurrence: US)
  Receive Date: 20221007
  Receipt Date: 20221007
  Transmission Date: 20230113
  Serious: Yes (Other)
  Sender: FDA-Public Use
  Company Number: US-009507513-2210USA000617

PATIENT
  Sex: Male

DRUGS (1)
  1. TICE BCG [Suspect]
     Active Substance: BACILLUS CALMETTE-GUERIN SUBSTRAIN TICE LIVE ANTIGEN
     Indication: Bladder cancer
     Dosage: UNK
     Route: 043
     Dates: start: 202110

REACTIONS (7)
  - Urinary bladder haemorrhage [Unknown]
  - Bladder injury [Unknown]
  - Micturition urgency [Unknown]
  - Intentional dose omission [Unknown]
  - Inappropriate schedule of product administration [Unknown]
  - Incorrect dose administered [Unknown]
  - Product availability issue [Unknown]

NARRATIVE: CASE EVENT DATE: 20220101
